FAERS Safety Report 16875475 (Version 1)
Quarter: 2019Q4

REPORT INFORMATION
  Report Type: Other
  Country: IT (occurrence: IT)
  Receive Date: 20191002
  Receipt Date: 20191002
  Transmission Date: 20200122
  Serious: Yes (Other)
  Sender: FDA-Public Use
  Company Number: IT-CELLTRION INC.-2019IT024265

PATIENT

DRUGS (3)
  1. REMSIMA [Suspect]
     Active Substance: INFLIXIMAB
     Indication: COLITIS ULCERATIVE
     Dosage: 5 MG/KG, CYCLIC
     Route: 041
     Dates: end: 20190625
  2. DIBASE [Concomitant]
     Active Substance: CHOLECALCIFEROL
  3. ASACOL [Concomitant]
     Active Substance: MESALAMINE

REACTIONS (1)
  - Hypoacusis [Recovered/Resolved with Sequelae]

NARRATIVE: CASE EVENT DATE: 20190511
